FAERS Safety Report 13715598 (Version 13)
Quarter: 2017Q3

REPORT INFORMATION
  Report Type: Report from Study
  Country: None (occurrence: BE)
  Receive Date: 20170705
  Receipt Date: 20170920
  Transmission Date: 20171127
  Serious: Yes (Hospitalization)
  Sender: FDA-Public Use
  Company Number: BE-ABBVIE-17K-013-2018882-00

PATIENT
  Sex: Male

DRUGS (16)
  1. DUODOPA [Suspect]
     Active Substance: CARBIDOPA\LEVODOPA
     Dosage: MD=3ML?CD=2.6ML/HR DURING 16HRS?EDA=3ML?ND=2ML/HR DURING 8HRS
     Route: 050
     Dates: start: 20170706, end: 20170718
  2. DUODOPA [Suspect]
     Active Substance: CARBIDOPA\LEVODOPA
     Dosage: MD: 3ML; CD: 2.6ML/H FOR 16HRS; ND: 2.0ML/H FOR 8HRS; EDA: 3ML
     Route: 050
     Dates: start: 20170629, end: 20170706
  3. DUODOPA [Suspect]
     Active Substance: CARBIDOPA\LEVODOPA
     Indication: PARKINSON^S DISEASE
     Route: 050
     Dates: start: 20170531, end: 20170629
  4. DUODOPA [Suspect]
     Active Substance: CARBIDOPA\LEVODOPA
     Dosage: MD=0ML?CD=2ML/HR DURING 16HRS?EDA=1ML?ND=2ML/HR DURING 8HRS
     Route: 050
     Dates: start: 20170718, end: 20170725
  5. DUODOPA [Suspect]
     Active Substance: CARBIDOPA\LEVODOPA
     Dosage: MD= 1 ML; CD= 2.2 ML/H DURING 16 HRS; EDA= 1 ML
     Route: 050
     Dates: start: 20170725, end: 20170803
  6. DUODOPA [Suspect]
     Active Substance: CARBIDOPA\LEVODOPA
     Dosage: MD=1ML?CD=2.4ML/HR DURING 16HRS?EDA=1ML
     Route: 050
     Dates: start: 20170808, end: 20170811
  7. DUODOPA [Suspect]
     Active Substance: CARBIDOPA\LEVODOPA
     Dosage: MD=2ML, CD=2.4ML/HR DURING 16HRS, EDA=1.5ML
     Route: 050
     Dates: start: 20170830
  8. VALIUM [Concomitant]
     Active Substance: DIAZEPAM
     Indication: PRODUCT USED FOR UNKNOWN INDICATION
     Dosage: IN THE EVENING
  9. ATARAX [Concomitant]
     Active Substance: HYDROXYZINE HYDROCHLORIDE
     Indication: PRODUCT USED FOR UNKNOWN INDICATION
     Dosage: IN THE EVENING
  10. PROLOPA HBS [Concomitant]
     Active Substance: BENSERAZIDE\LEVODOPA
     Indication: PRODUCT USED FOR UNKNOWN INDICATION
     Dosage: DURING THE DAY
  11. DUODOPA [Suspect]
     Active Substance: CARBIDOPA\LEVODOPA
     Dosage: MD=2ML?CD=2.4ML/HR DURING 16HRS?EDA=1.3ML
     Route: 050
     Dates: start: 20170811, end: 20170830
  12. XADAGO [Concomitant]
     Active Substance: SAFINAMIDE MESYLATE
     Indication: PRODUCT USED FOR UNKNOWN INDICATION
  13. SIPRALEXA [Concomitant]
     Active Substance: ESCITALOPRAM OXALATE
     Indication: PRODUCT USED FOR UNKNOWN INDICATION
  14. DUODOPA [Suspect]
     Active Substance: CARBIDOPA\LEVODOPA
     Dosage: MD: 1ML; CD: 2.4ML/H FOR 16 HRS; EDA: 1.5ML
     Route: 050
     Dates: start: 20170803, end: 20170808
  15. LYRICA [Concomitant]
     Active Substance: PREGABALIN
     Indication: PRODUCT USED FOR UNKNOWN INDICATION
  16. TAMSULOSINE [Concomitant]
     Active Substance: TAMSULOSIN HYDROCHLORIDE
     Indication: PRODUCT USED FOR UNKNOWN INDICATION

REACTIONS (11)
  - Paranoia [Unknown]
  - Emotional distress [Unknown]
  - Feeling abnormal [Unknown]
  - Psychiatric decompensation [Not Recovered/Not Resolved]
  - Drug effect decreased [Unknown]
  - Confusional state [Unknown]
  - Suicidal ideation [Not Recovered/Not Resolved]
  - Self-medication [Unknown]
  - Mobility decreased [Recovering/Resolving]
  - Freezing phenomenon [Unknown]
  - Mental disorder [Recovering/Resolving]

NARRATIVE: CASE EVENT DATE: 2017
